FAERS Safety Report 8890914 (Version 1)
Quarter: 2012Q4

REPORT INFORMATION
  Report Type: 
  Country: DE (occurrence: DE)
  Receive Date: 20121107
  Receipt Date: 20121107
  Transmission Date: 20130627
  Serious: Yes (Hospitalization, Other)
  Sender: FDA-Public Use
  Company Number: DE-ELI_LILLY_AND_COMPANY-DE201210008832

PATIENT
  Age: 68 Year
  Sex: Female

DRUGS (4)
  1. ALIMTA [Suspect]
     Indication: PLEURAL MESOTHELIOMA
     Dosage: 500 mg/m2, other
     Dates: start: 20120710
  2. CARBOPLATIN [Concomitant]
     Indication: PLEURAL MESOTHELIOMA
     Dosage: AUC 5
     Dates: start: 20120710
  3. FOLIC ACID [Concomitant]
  4. VITAMIN B12 [Concomitant]

REACTIONS (7)
  - Hypomagnesaemia [Unknown]
  - Hypokalaemia [Unknown]
  - Renal impairment [Unknown]
  - Haematotoxicity [Unknown]
  - Asthenia [Unknown]
  - Fatigue [Unknown]
  - Diarrhoea [Unknown]
